FAERS Safety Report 4715647-2 (Version None)
Quarter: 2005Q3

REPORT INFORMATION
  Report Type: 
  Country: None (occurrence: None)
  Receive Date: 20050713
  Receipt Date: 20050624
  Transmission Date: 20060218
  Serious: Yes (Death, Hospitalization, Other)
  Sender: FDA-Public Use
  Company Number: L05-NOR-02371-01

PATIENT
  Age: 80 Year
  Sex: Female

DRUGS (4)
  1. LEVOTHYROXINE SODIUM [Suspect]
     Dosage: 125 MCG QD
  2. CIPROFLOXACIN [Suspect]
     Dosage: 750 MG BID
  3. DICLOXACILLIN [Concomitant]
  4. HEPARIN [Concomitant]

REACTIONS (6)
  - DRUG INEFFECTIVE [None]
  - DRUG INTERACTION [None]
  - FEMUR FRACTURE [None]
  - HYPOTHYROIDISM [None]
  - OSTEOMYELITIS [None]
  - THYROID CANCER METASTATIC [None]
